FAERS Safety Report 8516761-6 (Version None)
Quarter: 2012Q2

REPORT INFORMATION
  Report Type: 
  Country: None (occurrence: None)
  Receive Date: 20120406
  Receipt Date: 20091117
  Transmission Date: 20120825
  Serious: Yes (Other)
  Sender: FDA-Public Use
  Company Number: PHEH2009US16205

PATIENT
  Sex: Female

DRUGS (6)
  1. MAGNESIUM (MAGNESIUM) [Concomitant]
  2. POTASSIUM (POTASSIUM) [Concomitant]
  3. TASIGNA [Suspect]
     Indication: LEUKAEMIA
     Dates: start: 20090701
  4. CLONAZEPAM [Concomitant]
  5. INSULIN (INSULIN) [Concomitant]
  6. FOLIC ACID [Concomitant]

REACTIONS (3)
  - HEART RATE INCREASED [None]
  - SOMNOLENCE [None]
  - DIABETES MELLITUS [None]
